FAERS Safety Report 8099594 (Version 12)
Quarter: 2014Q1

REPORT INFORMATION
  Report Type: Spontaneous
  Country: GB (occurrence: GB)
  Receive Date: 20110822
  Receipt Date: 20140324
  Transmission Date: 20141002
  Serious: Yes (Hospitalization, Other)
  Sender: FDA-Public Use
  Company Number: GB-AMGEN-GBRSP2011011857

PATIENT
  Age: 34 Year
  Sex: Female
  Weight: 99.8 kg

DRUGS (9)
  1. NPLATE [Suspect]
     Indication: IMMUNE THROMBOCYTOPENIC PURPURA
     Dosage: 1 MUG/KG, QWK
     Route: 058
     Dates: start: 20100420, end: 20100920
  2. NORETHISTERONE [Suspect]
     Indication: PRODUCT USED FOR UNKNOWN INDICATION
     Dosage: 5 MG, UNK
     Route: 048
     Dates: start: 20100922, end: 20100928
  3. DEXAMETHASONE [Suspect]
     Indication: ANTIEMETIC SUPPORTIVE CARE
     Dosage: 40 MG, QD
     Route: 048
     Dates: start: 20100907, end: 20100910
  4. IMMUNOGLOBULIN [Suspect]
     Indication: IMMUNE THROMBOCYTOPENIC PURPURA
     Dosage: 1000 MG/KG, UNK
     Route: 042
     Dates: start: 20100922, end: 20100923
  5. LANSOPRAZOLE [Suspect]
     Indication: GASTROOESOPHAGEAL REFLUX PROPHYLAXIS
     Dosage: 30 MG, QD
     Route: 048
     Dates: start: 20100907, end: 20100928
  6. RITUXIMAB [Suspect]
     Indication: HAEMATOLOGY TEST ABNORMAL
     Dosage: 375 MG/M2, 2 TIMES/WK
     Route: 041
     Dates: start: 20100917, end: 20100924
  7. TRANEXAMIC ACID [Suspect]
     Indication: PRODUCT USED FOR UNKNOWN INDICATION
     Dosage: 1 DF, QID
     Route: 048
     Dates: start: 20100922, end: 20100928
  8. ANTI D [Concomitant]
     Dosage: UNK
     Route: 065
  9. VINCRISTINE [Concomitant]
     Dosage: UNK
     Route: 065

REACTIONS (9)
  - Rash erythematous [Recovered/Resolved]
  - Rash maculo-papular [Recovered/Resolved]
  - Purpura [Recovered/Resolved]
  - Haemoglobin decreased [Unknown]
  - Melaena [Unknown]
  - Rectal haemorrhage [Unknown]
  - Vaginal haemorrhage [Unknown]
  - Haemorrhage [Unknown]
  - Arthralgia [Unknown]
